FAERS Safety Report 8558507-1 (Version None)
Quarter: 2012Q3

REPORT INFORMATION
  Report Type: 
  Country: None (occurrence: None)
  Receive Date: 20120801
  Receipt Date: 20000328
  Transmission Date: 20120928
  Serious: Yes (Death)
  Sender: FDA-Public Use
  Company Number: US-JNJFOC-20120606437

PATIENT
  Age: 52 Year
  Sex: Male
  Weight: 68.04 kg

DRUGS (10)
  1. PEPCID RPD [Suspect]
     Route: 048
  2. PEPCID [Suspect]
     Route: 048
  3. MERCUROCHROME-220-HWD [Concomitant]
     Indication: PRODUCT USED FOR UNKNOWN INDICATION
     Route: 065
  4. BISMUTH SUBSALICYLATE [Concomitant]
     Indication: PRODUCT USED FOR UNKNOWN INDICATION
     Route: 065
  5. HYDROXYZINE [Concomitant]
     Indication: PRODUCT USED FOR UNKNOWN INDICATION
     Route: 065
  6. QUETIAPINE FUMARATE [Concomitant]
     Indication: PRODUCT USED FOR UNKNOWN INDICATION
     Route: 065
  7. MIRTAZAPINE [Concomitant]
     Indication: PRODUCT USED FOR UNKNOWN INDICATION
     Route: 065
  8. TRAZODONE HYDROCHLORIDE [Concomitant]
     Indication: PRODUCT USED FOR UNKNOWN INDICATION
     Route: 065
  9. PEPCID RPD [Suspect]
     Indication: DYSPEPSIA
     Dosage: ORALLY DISINTIGRATING TABLET ONE TIME DOSE
     Route: 048
     Dates: start: 20000312, end: 20000312
  10. PEPCID [Suspect]
     Indication: DYSPEPSIA
     Route: 048
     Dates: start: 20000309, end: 20000312

REACTIONS (3)
  - EMPHYSEMA [None]
  - DYSGEUSIA [None]
  - MYOCARDIAL INFARCTION [None]
